FAERS Safety Report 21129211 (Version 1)
Quarter: 2022Q3

REPORT INFORMATION
  Report Type: Spontaneous
  Country: DE (occurrence: DE)
  Receive Date: 20220725
  Receipt Date: 20220725
  Transmission Date: 20221027
  Serious: Yes (Death, Other)
  Sender: FDA-Public Use
  Company Number: DE-SEATTLE GENETICS-2022SGN06954

PATIENT
  Sex: Female

DRUGS (2)
  1. TUKYSA [Suspect]
     Active Substance: TUCATINIB
     Indication: Breast cancer metastatic
     Dosage: UNK
     Route: 065
     Dates: start: 202012
  2. TUKYSA [Suspect]
     Active Substance: TUCATINIB
     Indication: Metastases to meninges

REACTIONS (2)
  - Malignant neoplasm progression [Fatal]
  - Off label use [Unknown]
